FAERS Safety Report 6363906-2 (Version None)
Quarter: 2009Q3

REPORT INFORMATION
  Report Type: 
  Country: None (occurrence: None)
  Receive Date: 20090919
  Receipt Date: 20090707
  Transmission Date: 20100115
  Serious: No
  Sender: FDA-Public Use
  Company Number: US-ABBOTT-09P-163-0584289-00

PATIENT
  Sex: Female
  Weight: 57.204 kg

DRUGS (3)
  1. HUMIRA [Suspect]
     Indication: CROHN'S DISEASE
     Route: 058
     Dates: start: 20080901
  2. UNKNOWN HORMONE REPLACEMENT [Concomitant]
     Indication: DRUG USE FOR UNKNOWN INDICATION
  3. VITAMINS [Concomitant]
     Indication: DRUG USE FOR UNKNOWN INDICATION

REACTIONS (2)
  - DIARRHOEA [None]
  - DRUG DOSE OMISSION [None]
